FAERS Safety Report 19505393 (Version 1)
Quarter: 2021Q3

REPORT INFORMATION
  Report Type: Spontaneous
  Country: BR (occurrence: BR)
  Receive Date: 20210708
  Receipt Date: 20210708
  Transmission Date: 20211014
  Serious: Yes (Hospitalization, Disabling)
  Sender: FDA-Public Use
  Company Number: BR-ABBVIE-21K-020-3851412-00

PATIENT
  Age: 68 Year
  Sex: Male
  Weight: 75.4 kg

DRUGS (8)
  1. VENCLEXTA [Suspect]
     Active Substance: VENETOCLAX
     Dosage: UNSPECIFIED DOSE. 4 TABLETS IN THE MORNING BEFORE A MEAL
     Route: 048
     Dates: start: 20210620
  2. SELOZOK [Concomitant]
     Active Substance: METOPROLOL SUCCINATE
     Indication: INFARCTION
     Dosage: UNSPECIFIC DOSE
  3. AZACITIDINE. [Suspect]
     Active Substance: AZACITIDINE
     Indication: ACUTE LEUKAEMIA
     Dosage: 100ML PLUS 50ML. DAYS 1 TO 14 OF EACH 28 DAY CYCLE
     Route: 058
     Dates: start: 2020
  4. LIPITOR [Concomitant]
     Active Substance: ATORVASTATIN CALCIUM
     Indication: CARDIAC DISORDER
  5. VENCLEXTA [Suspect]
     Active Substance: VENETOCLAX
     Indication: ACUTE MYELOID LEUKAEMIA
     Dosage: UNSPECIFIED DOSE. 4 TABLETS IN THE MORNING BEFORE A MEAL
     Route: 048
     Dates: start: 202003, end: 202104
  6. ATORVASTATIN [Concomitant]
     Active Substance: ATORVASTATIN
     Indication: CARDIAC DISORDER
     Dosage: UNSPECIFIC DOSE
  7. ZETIA [Concomitant]
     Active Substance: EZETIMIBE
     Indication: CARDIAC DISORDER
     Dosage: UNSPECIFIC DOSE
  8. CLOPIN [Concomitant]
     Indication: CARDIAC DISORDER
     Dosage: UNSPECIFIC DOSE

REACTIONS (11)
  - Hospitalisation [Recovered/Resolved]
  - Dizziness [Recovered/Resolved]
  - Gait disturbance [Recovered/Resolved]
  - Dyspnoea exertional [Recovered/Resolved]
  - Injection site erythema [Unknown]
  - Red blood cell abnormality [Unknown]
  - White blood cell disorder [Unknown]
  - Asthenia [Unknown]
  - Red blood cell count increased [Unknown]
  - Blood pressure decreased [Recovered/Resolved]
  - Aphonia [Recovered/Resolved]

NARRATIVE: CASE EVENT DATE: 20210406
